FAERS Safety Report 9397500 (Version 1)
Quarter: 2013Q3

REPORT INFORMATION
  Report Type: Spontaneous
  Country: US (occurrence: US)
  Receive Date: 20130712
  Receipt Date: 20130712
  Transmission Date: 20140515
  Serious: Yes (Hospitalization, Other)
  Sender: FDA-Public Use
  Company Number: US-CELGENEUS-163-21880-13052734

PATIENT
  Age: 71 Year
  Sex: Male

DRUGS (39)
  1. REVLIMID [Suspect]
     Indication: PLASMA CELL MYELOMA
     Dosage: 15 MILLIGRAM
     Route: 048
     Dates: start: 20100719
  2. REVLIMID [Suspect]
     Dosage: 10 MILLIGRAM
     Route: 048
     Dates: start: 201104
  3. REVLIMID [Suspect]
     Dosage: 15 MILLIGRAM
     Route: 048
     Dates: start: 201205
  4. REVLIMID [Suspect]
     Dosage: 10 MILLIGRAM
     Route: 048
     Dates: start: 201210
  5. REVLIMID [Suspect]
     Dosage: 10 MILLIGRAM
     Route: 048
     Dates: start: 20130604
  6. RED BLOOD CELLS [Concomitant]
     Indication: HAEMOGLOBIN DECREASED
     Dosage: 2 UNITS
     Route: 041
     Dates: start: 20120710, end: 20120710
  7. RED BLOOD CELLS [Concomitant]
     Dosage: 2 UNITS
     Route: 041
     Dates: start: 20120905, end: 20120905
  8. RED BLOOD CELLS [Concomitant]
     Dosage: 2 UNITS
     Route: 041
     Dates: start: 20120919, end: 20120919
  9. RED BLOOD CELLS [Concomitant]
     Dosage: 2 UNITS
     Route: 041
     Dates: start: 20120925, end: 20120925
  10. RED BLOOD CELLS [Concomitant]
     Dosage: 2 UNITS
     Route: 041
     Dates: start: 20121008, end: 20121008
  11. RED BLOOD CELLS [Concomitant]
     Dosage: 2 UNITS
     Route: 041
     Dates: start: 20121017, end: 20121017
  12. RED BLOOD CELLS [Concomitant]
     Dosage: 2 UNITS
     Route: 041
     Dates: start: 20130102, end: 20130102
  13. RED BLOOD CELLS [Concomitant]
     Dosage: 2 UNITS
     Route: 041
     Dates: start: 20130219, end: 20130219
  14. RED BLOOD CELLS [Concomitant]
     Dosage: 2 UNITS
     Route: 041
     Dates: start: 20130312, end: 20130312
  15. RED BLOOD CELLS [Concomitant]
     Dosage: 2 UNITS
     Route: 041
     Dates: start: 20130410, end: 20130410
  16. RED BLOOD CELLS [Concomitant]
     Dosage: 2 UNITS
     Route: 041
     Dates: start: 20130423, end: 20130423
  17. RED BLOOD CELLS [Concomitant]
     Dosage: 2 UNITS
     Route: 041
     Dates: start: 20130611, end: 20130611
  18. RED BLOOD CELLS [Concomitant]
     Dosage: 2 UNITS
     Route: 041
     Dates: start: 20130625, end: 20130625
  19. PLATELETS [Concomitant]
     Indication: PLATELET COUNT DECREASED
     Dosage: 1 UNITS
     Route: 041
     Dates: start: 20121008, end: 20121008
  20. PLATELETS [Concomitant]
     Dosage: 1 UNITS
     Route: 041
     Dates: start: 20130312, end: 20130312
  21. COUMADIN [Concomitant]
     Indication: PRODUCT USED FOR UNKNOWN INDICATION
     Route: 065
     Dates: start: 20120814, end: 20121106
  22. CARFILZOMIB [Concomitant]
     Indication: PRODUCT USED FOR UNKNOWN INDICATION
     Route: 041
     Dates: start: 20120815, end: 20130409
  23. CARFILZOMIB [Concomitant]
     Route: 041
     Dates: start: 20130416
  24. DECADRON [Concomitant]
     Indication: PRODUCT USED FOR UNKNOWN INDICATION
     Route: 048
     Dates: start: 20120815, end: 20130409
  25. DECADRON [Concomitant]
     Route: 048
     Dates: start: 20130416
  26. DECADRON [Concomitant]
     Route: 048
     Dates: start: 20130530
  27. PLAQUENIL [Concomitant]
     Indication: PRODUCT USED FOR UNKNOWN INDICATION
     Dosage: 200 MILLIGRAM
     Route: 048
     Dates: start: 20120815, end: 20130409
  28. ACYCLOVIR [Concomitant]
     Indication: PRODUCT USED FOR UNKNOWN INDICATION
     Dosage: 400 MILLIGRAM
     Route: 048
     Dates: start: 20120807
  29. ADVIL [Concomitant]
     Indication: PAIN
     Route: 048
     Dates: start: 20130319
  30. COREG [Concomitant]
     Indication: PRODUCT USED FOR UNKNOWN INDICATION
     Dosage: 6.25 MILLIGRAM
     Route: 048
     Dates: start: 20130221
  31. DIGOXIN [Concomitant]
     Indication: PRODUCT USED FOR UNKNOWN INDICATION
     Dosage: 125 MICROGRAM
     Route: 048
     Dates: start: 20121204
  32. GABAPENTIN [Concomitant]
     Indication: PRODUCT USED FOR UNKNOWN INDICATION
     Dosage: 1200 MICROGRAM
     Route: 048
     Dates: start: 20130221
  33. IMODIUM [Concomitant]
     Indication: PRODUCT USED FOR UNKNOWN INDICATION
     Route: 065
     Dates: start: 20130305
  34. MAGNESIUM [Concomitant]
     Indication: PRODUCT USED FOR UNKNOWN INDICATION
     Dosage: 500 MILLIGRAM
     Route: 048
     Dates: start: 20130530
  35. MARINOL [Concomitant]
     Indication: PRODUCT USED FOR UNKNOWN INDICATION
     Dosage: 7.5 MILLIGRAM
     Route: 048
     Dates: start: 20120807
  36. MYCELEX [Concomitant]
     Indication: PRODUCT USED FOR UNKNOWN INDICATION
     Route: 048
     Dates: start: 20130530
  37. OXYCONTIN [Concomitant]
     Indication: PRODUCT USED FOR UNKNOWN INDICATION
     Dosage: 30 MILLIGRAM
     Route: 048
     Dates: start: 20130611
  38. TYLENOL [Concomitant]
     Indication: PRODUCT USED FOR UNKNOWN INDICATION
     Dosage: 1950 MILLIGRAM
     Route: 048
     Dates: start: 20120807
  39. VITAMIN D3 [Concomitant]
     Indication: PRODUCT USED FOR UNKNOWN INDICATION
     Dosage: 1000 UNITS
     Route: 048
     Dates: start: 20130530

REACTIONS (7)
  - Septic shock [Unknown]
  - Fall [Unknown]
  - Pneumonia [Recovered/Resolved]
  - Staphylococcal bacteraemia [Unknown]
  - Pancytopenia [Unknown]
  - Lobar pneumonia [Unknown]
  - Femur fracture [Recovered/Resolved]
